FAERS Safety Report 16044225 (Version 1)
Quarter: 2019Q1

REPORT INFORMATION
  Report Type: Spontaneous
  Country: FR (occurrence: FR)
  Receive Date: 20190306
  Receipt Date: 20190306
  Transmission Date: 20190418
  Serious: Yes (Hospitalization, Other)
  Sender: FDA-Public Use
  Company Number: FR-MYLANLABS-2019M1020622

PATIENT
  Age: 36 Year
  Sex: Male

DRUGS (8)
  1. CHLORPROMAZINE. [Suspect]
     Active Substance: CHLORPROMAZINE
     Indication: HICCUPS
     Dosage: FORMULATION: SYRUP
     Route: 048
  2. FOLINIC ACID [Suspect]
     Active Substance: LEUCOVORIN
     Indication: ADENOCARCINOMA PANCREAS
     Route: 065
  3. HYDROXYZINE [Concomitant]
     Active Substance: HYDROXYZINE HYDROCHLORIDE
     Indication: ANXIETY DISORDER
     Dosage: THREE TIMES A DAY.
     Route: 065
  4. OXALIPLATIN. [Suspect]
     Active Substance: OXALIPLATIN
     Indication: ADENOCARCINOMA PANCREAS
     Route: 065
  5. IRINOTECAN [Suspect]
     Active Substance: IRINOTECAN
     Indication: ADENOCARCINOMA PANCREAS
     Route: 065
  6. CHLORPROMAZINE. [Suspect]
     Active Substance: CHLORPROMAZINE
     Dosage: THREE TIMES A DAY.
     Route: 048
  7. CHLORPROMAZINE. [Suspect]
     Active Substance: CHLORPROMAZINE
     Indication: HICCUPS
     Route: 048
  8. FLUOROURACIL. [Suspect]
     Active Substance: FLUOROURACIL
     Indication: ADENOCARCINOMA PANCREAS
     Route: 065

REACTIONS (4)
  - Hiccups [Recovering/Resolving]
  - Weight decreased [Unknown]
  - Decreased appetite [Unknown]
  - Insomnia [Unknown]
